FAERS Safety Report 5367723-1 (Version None)
Quarter: 2007Q2

REPORT INFORMATION
  Report Type: 
  Country: None (occurrence: None)
  Receive Date: 20070619
  Receipt Date: 20070608
  Transmission Date: 20071010
  Serious: Yes (Death)
  Sender: FDA-Public Use
  Company Number: 07H-028-0312716-00

PATIENT
  Age: 65 Year
  Sex: Male
  Weight: 85 kg

DRUGS (15)
  1. QUELICIN [Suspect]
     Indication: DRUG USE FOR UNKNOWN INDICATION
     Dosage: 50 MG, SINGLE DOSE, INTRAVENOUS
     Route: 042
     Dates: start: 20070606, end: 20070606
  2. PROPOFOL [Concomitant]
  3. ACETYLCYSTEINE [Concomitant]
  4. OMEPRAZOLE [Concomitant]
  5. SIMVASTATIN [Concomitant]
  6. VANCOMYCIN HCL (VANCOMYIN HYDROCHLORIDE) [Concomitant]
  7. ACETAMINOPHEN [Concomitant]
  8. AMIODARONE HCL (AMIODARONE HYDROCHLORIDE) [Concomitant]
  9. INSULIN HUMAN REGULAR [Concomitant]
  10. IPRATROPIUM BROMIDE [Concomitant]
  11. POTASSIUM CHLORIDE [Concomitant]
  12. MIDAZOLAM HCL [Concomitant]
  13. MORPHINE SULFATE [Concomitant]
  14. NOREPINEPHRINE BITARTRATE [Concomitant]
  15. SALBUTAMOL [Concomitant]

REACTIONS (3)
  - BRAIN DEATH [None]
  - CARDIAC ARREST [None]
  - VENTRICULAR TACHYCARDIA [None]
